FAERS Safety Report 4457310-1 (Version None)
Quarter: 2004Q3

REPORT INFORMATION
  Report Type: 
  Country: None (occurrence: None)
  Receive Date: 20040922
  Receipt Date: 20040908
  Transmission Date: 20050211
  Serious: Yes (Hospitalization, Other)
  Sender: FDA-Public Use
  Company Number: 04-212-0768

PATIENT
  Age: 76 Year
  Sex: Female
  Weight: 63.9572 kg

DRUGS (3)
  1. DAUNORUBICIN HCL [Suspect]
     Indication: ACUTE MYELOID LEUKAEMIA
     Dosage: 45 MG/M2 IV DAYS 1,3
     Dates: start: 20040504
  2. REFER TO ATTACHMENT I (ELLY LILLY # US_0405103242) [Suspect]
  3. REFER TO ATTACHMENT I (ELLY LILLY #US_0405103242). [Concomitant]

REACTIONS (13)
  - ARTHRALGIA [None]
  - BLOOD BICARBONATE DECREASED [None]
  - DIARRHOEA [None]
  - DYSURIA [None]
  - FATIGUE [None]
  - FEBRILE NEUTROPENIA [None]
  - HEADACHE [None]
  - HYPERGLYCAEMIA [None]
  - HYPERKALAEMIA [None]
  - HYPOTENSION [None]
  - INFECTION [None]
  - PANCYTOPENIA [None]
  - PARONYCHIA [None]
